FAERS Safety Report 12379579 (Version 1)
Quarter: 2016Q2

REPORT INFORMATION
  Report Type: Spontaneous
  Country: TR (occurrence: TR)
  Receive Date: 20160517
  Receipt Date: 20160517
  Transmission Date: 20160815
  Serious: Yes (Life-Threatening, Hospitalization, Congenital Anomaly, Other)
  Sender: FDA-Public Use
  Company Number: TR-MYLANLABS-2016M1020307

PATIENT

DRUGS (1)
  1. VALPROIC ACID. [Suspect]
     Active Substance: VALPROIC ACID
     Indication: EPILEPSY
     Dosage: AROUND 3 YEARS
     Route: 064

REACTIONS (8)
  - Foetal exposure during pregnancy [Recovered/Resolved]
  - Developmental hip dysplasia [Unknown]
  - Premature baby [Unknown]
  - Neonatal respiratory distress syndrome [Unknown]
  - Patent ductus arteriosus [Unknown]
  - Meningomyelocele [Unknown]
  - Heterotaxia [Recovering/Resolving]
  - Arnold-Chiari malformation [Unknown]
